FAERS Safety Report 10166487 (Version 1)
Quarter: 2014Q2

REPORT INFORMATION
  Report Type: Spontaneous
  Country: US (occurrence: US)
  Receive Date: 20140512
  Receipt Date: 20140512
  Transmission Date: 20141212
  Serious: No
  Sender: FDA-Public Use
  Company Number: US-MYLANLABS-2014S1004122

PATIENT
  Age: 58 Year
  Sex: Female
  Weight: 86.18 kg

DRUGS (2)
  1. MORPHINE SULFATE EXTENDED-RELEASE TABLETS [Suspect]
     Indication: PAIN
     Route: 048
     Dates: start: 20130218, end: 201402
  2. LYRICA [Suspect]
     Indication: PAIN
     Route: 048
     Dates: start: 20130218, end: 201402

REACTIONS (1)
  - Gastritis [Recovered/Resolved]
